FAERS Safety Report 6210866-0 (Version None)
Quarter: 2009Q2

REPORT INFORMATION
  Report Type: 
  Country: None (occurrence: None)
  Receive Date: 20090601
  Receipt Date: 20090521
  Transmission Date: 20091009
  Serious: Yes (Death, Hospitalization)
  Sender: FDA-Public Use
  Company Number: JP-PFIZER INC-2009212192

PATIENT
  Age: 88 Year

DRUGS (3)
  1. SUNITINIB MALATE [Suspect]
     Indication: GASTROINTESTINAL STROMAL TUMOUR
     Dosage: 50 MG, 1X/DAY
     Route: 048
     Dates: start: 20090407, end: 20090419
  2. THYRADIN S [Concomitant]
     Route: 048
     Dates: end: 20090419
  3. PARIET [Concomitant]
     Dates: end: 20090419

REACTIONS (3)
  - DISEASE PROGRESSION [None]
  - GASTROINTESTINAL STROMAL TUMOUR [None]
  - VOMITING [None]
